FAERS Safety Report 25475139 (Version 1)
Quarter: 2025Q2

REPORT INFORMATION
  Report Type: Spontaneous
  Country: ES (occurrence: ES)
  Receive Date: 20250624
  Receipt Date: 20250624
  Transmission Date: 20250717
  Serious: Yes (Death, Hospitalization, Other)
  Sender: MYLAN
  Company Number: None

PATIENT
  Age: 60 Year
  Sex: Female

DRUGS (12)
  1. ACETAMINOPHEN [Interacting]
     Active Substance: ACETAMINOPHEN
     Indication: Product used for unknown indication
     Dates: start: 20200517, end: 20200517
  2. ACETAMINOPHEN [Interacting]
     Active Substance: ACETAMINOPHEN
     Route: 048
     Dates: start: 20200517, end: 20200517
  3. ACETAMINOPHEN [Interacting]
     Active Substance: ACETAMINOPHEN
     Route: 048
     Dates: start: 20200517, end: 20200517
  4. ACETAMINOPHEN [Interacting]
     Active Substance: ACETAMINOPHEN
     Dates: start: 20200517, end: 20200517
  5. CLORAZEPIC ACID [Interacting]
     Active Substance: CLORAZEPIC ACID
     Indication: Product used for unknown indication
     Dates: start: 20200517, end: 20200517
  6. CLORAZEPIC ACID [Interacting]
     Active Substance: CLORAZEPIC ACID
     Route: 048
     Dates: start: 20200517, end: 20200517
  7. CLORAZEPIC ACID [Interacting]
     Active Substance: CLORAZEPIC ACID
     Route: 048
     Dates: start: 20200517, end: 20200517
  8. CLORAZEPIC ACID [Interacting]
     Active Substance: CLORAZEPIC ACID
     Dates: start: 20200517, end: 20200517
  9. TIAPRIDE HYDROCHLORIDE [Interacting]
     Active Substance: TIAPRIDE HYDROCHLORIDE
     Indication: Product used for unknown indication
     Dates: start: 20200517, end: 20200517
  10. TIAPRIDE HYDROCHLORIDE [Interacting]
     Active Substance: TIAPRIDE HYDROCHLORIDE
     Route: 048
     Dates: start: 20200517, end: 20200517
  11. TIAPRIDE HYDROCHLORIDE [Interacting]
     Active Substance: TIAPRIDE HYDROCHLORIDE
     Route: 048
     Dates: start: 20200517, end: 20200517
  12. TIAPRIDE HYDROCHLORIDE [Interacting]
     Active Substance: TIAPRIDE HYDROCHLORIDE
     Dates: start: 20200517, end: 20200517

REACTIONS (8)
  - Hypotension [Fatal]
  - Depressed level of consciousness [Fatal]
  - Acute hepatic failure [Fatal]
  - Bradycardia [Fatal]
  - Metabolic acidosis [Fatal]
  - Suicide attempt [Unknown]
  - Intentional overdose [Recovered/Resolved]
  - Drug interaction [Unknown]

NARRATIVE: CASE EVENT DATE: 20200517
